FAERS Safety Report 8984929 (Version 4)
Quarter: 2013Q1

REPORT INFORMATION
  Report Type: Spontaneous
  Country: US (occurrence: US)
  Receive Date: 20121226
  Receipt Date: 20130307
  Transmission Date: 20140127
  Serious: No
  Sender: FDA-Public Use
  Company Number: US-PFIZER INC-2012324339

PATIENT
  Sex: Female

DRUGS (8)
  1. NICOTROL INHALER [Suspect]
     Indication: SMOKING CESSATION THERAPY
     Dosage: UNK, 2X/DAY
     Route: 055
     Dates: start: 20121219, end: 20121219
  2. AMOXICILLIN [Concomitant]
     Dosage: UNK
  3. CYMBALTA [Concomitant]
     Dosage: UNK
  4. FENTANYL [Concomitant]
     Dosage: UNK
  5. DALIRESP [Concomitant]
     Dosage: UNK
  6. BUSPIRONE [Concomitant]
     Dosage: UNK
  7. CELEBREX [Concomitant]
     Dosage: UNK
  8. VITAMIN D [Concomitant]
     Dosage: 50000 IU, 2X/WEEK

REACTIONS (6)
  - Gait disturbance [Unknown]
  - Erythema [Unknown]
  - Pruritus [Unknown]
  - Increased upper airway secretion [Unknown]
  - Rash macular [Unknown]
  - Hypersensitivity [Recovered/Resolved]
